FAERS Safety Report 7893772-5 (Version None)
Quarter: 2011Q4

REPORT INFORMATION
  Report Type: 
  Country: None (occurrence: None)
  Receive Date: 20111104
  Receipt Date: 20111031
  Transmission Date: 20120403
  Serious: Yes (Hospitalization)
  Sender: FDA-Public Use
  Company Number: JP-ABBOTT-11P-087-0851229-00

PATIENT
  Sex: Female
  Weight: 41 kg

DRUGS (11)
  1. PREDNISOLONE [Concomitant]
     Indication: CROHN'S DISEASE
     Dosage: 2.5 MG DAILY
     Route: 048
  2. HUMIRA [Suspect]
     Indication: CROHN'S DISEASE
     Route: 058
     Dates: start: 20110221, end: 20110221
  3. HUMIRA [Suspect]
     Dates: start: 20110711, end: 20110905
  4. ETIZOLAM [Concomitant]
     Indication: PRODUCT USED FOR UNKNOWN INDICATION
     Route: 048
     Dates: start: 20101025
  5. BROTIZOLAM [Concomitant]
     Indication: INSOMNIA
     Route: 048
     Dates: start: 20100916
  6. MESALAMINE [Concomitant]
     Indication: CROHN'S DISEASE
     Dosage: 2250 MG DAILY
     Route: 048
  7. RABEPRAZOLE SODIUM [Concomitant]
     Indication: PRODUCT USED FOR UNKNOWN INDICATION
     Route: 048
  8. BROTIZOLAM [Concomitant]
     Indication: PROPHYLAXIS
  9. HUMIRA [Suspect]
     Dates: start: 20110307, end: 20110307
  10. FERROUS CITRATE [Concomitant]
     Indication: ANAEMIA
     Route: 048
     Dates: start: 20021218, end: 20110620
  11. HUMIRA [Suspect]
     Dates: start: 20110321, end: 20110502

REACTIONS (2)
  - DIARRHOEA [None]
  - INTESTINAL STENOSIS [None]
